FAERS Safety Report 8555680-6 (Version None)
Quarter: 2012Q3

REPORT INFORMATION
  Report Type: 
  Country: None (occurrence: None)
  Receive Date: 20120801
  Receipt Date: 20120718
  Transmission Date: 20120928
  Serious: Yes (Other)
  Sender: FDA-Public Use
  Company Number: FR-MYLANLABS-2012S1014978

PATIENT
  Age: 17 Year

DRUGS (3)
  1. MINOCYCLINE HCL [Suspect]
     Indication: ANTIBIOTIC PROPHYLAXIS
     Dosage: 100 MG/DAY
     Route: 065
  2. COTRIM [Concomitant]
     Indication: ANTIBIOTIC PROPHYLAXIS
     Route: 065
  3. MINOCYCLINE HCL [Suspect]
     Dosage: 200 MG/DAY
     Route: 065

REACTIONS (2)
  - PERICARDIAL EFFUSION [None]
  - PERICARDITIS [None]
